FAERS Safety Report 18950175 (Version 1)
Quarter: 2021Q1

REPORT INFORMATION
  Report Type: Spontaneous
  Country: FR (occurrence: FR)
  Receive Date: 20210228
  Receipt Date: 20210228
  Transmission Date: 20210420
  Serious: Yes (Death, Hospitalization)
  Sender: FDA-Public Use
  Company Number: FR-TEVA-2021-FR-1883564

PATIENT
  Age: 84 Year
  Sex: Female
  Weight: 65 kg

DRUGS (14)
  1. EPHEDRINE. [Suspect]
     Active Substance: EPHEDRINE
     Indication: ANAESTHESIA
     Dosage: 30MILLIGRAM
     Route: 042
     Dates: start: 20210126, end: 20210126
  2. NEOSYNEPHRINE [Suspect]
     Active Substance: PHENYLEPHRINE HYDROCHLORIDE
     Indication: ANAESTHESIA
     Dosage: 200MICROGRAM
     Route: 042
     Dates: start: 20210126, end: 20210126
  3. TRACRIUM [Suspect]
     Active Substance: ATRACURIUM BESYLATE
     Indication: ANAESTHESIA
     Dosage: 1DOSAGEFORM
     Route: 042
     Dates: start: 20210126, end: 20210126
  4. LANSOPRAZOLE. [Suspect]
     Active Substance: LANSOPRAZOLE
     Indication: PRODUCT USED FOR UNKNOWN INDICATION
     Dosage: 30MILLIGRAM
     Route: 048
     Dates: start: 20210127, end: 20210201
  5. PARACETAMOL [Suspect]
     Active Substance: ACETAMINOPHEN
     Indication: ANALGESIC THERAPY
     Dosage: 1GRAM
     Route: 042
     Dates: start: 20210126, end: 20210126
  6. YERVOY [Suspect]
     Active Substance: IPILIMUMAB
     Indication: MALIGNANT MELANOMA
     Dosage: 3MG/KG
     Route: 042
     Dates: start: 20201223, end: 20210113
  7. PROPOFOL. [Suspect]
     Active Substance: PROPOFOL
     Indication: ANAESTHESIA
     Dosage: 100MILLIGRAM
     Route: 042
     Dates: start: 20210126, end: 20210126
  8. XENETIX [Suspect]
     Active Substance: IOBITRIDOL
     Indication: SCAN WITH CONTRAST
     Dosage: UNKNOWN
     Route: 042
     Dates: start: 20210128, end: 20210128
  9. NICARDIPINE (CHLORHYDRATE DE) [Suspect]
     Active Substance: NICARDIPINE HYDROCHLORIDE
     Indication: EPISTAXIS
     Dosage: 20MILLIGRAM
     Route: 048
     Dates: start: 20210123, end: 20210123
  10. OPDIVO [Suspect]
     Active Substance: NIVOLUMAB
     Indication: MALIGNANT MELANOMA
     Dosage: 1MG/KG
     Route: 042
     Dates: start: 20201223, end: 20210113
  11. EXACYL 500 MG, COMPRIME PELLICULE [Suspect]
     Active Substance: TRANEXAMIC ACID
     Dosage: 1DOSAGEFORM
     Route: 042
     Dates: start: 20210123, end: 20210201
  12. SUFENTANIL [Suspect]
     Active Substance: SUFENTANIL
     Indication: INDUCTION OF ANAESTHESIA
     Dosage: 30MICROGRAM
     Route: 042
     Dates: start: 20210126, end: 20210126
  13. HEPARIN [Suspect]
     Active Substance: HEPARIN SODIUM
     Indication: ANTICOAGULANT THERAPY
     Dosage: 7758IU
     Route: 042
     Dates: start: 20210126, end: 20210126
  14. EUPANTOL [Concomitant]
     Active Substance: PANTOPRAZOLE SODIUM
     Dosage: UNKNOWN
     Route: 048
     Dates: end: 20210123

REACTIONS (4)
  - Pyrexia [Not Recovered/Not Resolved]
  - Rash maculo-papular [Not Recovered/Not Resolved]
  - Eosinophilia [Not Recovered/Not Resolved]
  - Drug reaction with eosinophilia and systemic symptoms [Not Recovered/Not Resolved]

NARRATIVE: CASE EVENT DATE: 20210127
